FAERS Safety Report 8915804 (Version 1)
Quarter: 2012Q4

REPORT INFORMATION
  Report Type: 
  Country: US (occurrence: US)
  Receive Date: 20121119
  Receipt Date: 20121119
  Transmission Date: 20130627
  Serious: No
  Sender: FDA-Public Use
  Company Number: US-009507513-1211USA004294

PATIENT
  Age: 20 Year
  Sex: Female
  Weight: 90.7 kg

DRUGS (1)
  1. IMPLANON [Suspect]
     Indication: CONTRACEPTION
     Dosage: each 3 years
     Route: 059
     Dates: start: 20120501

REACTIONS (2)
  - Application site pain [Not Recovered/Not Resolved]
  - Application site mass [Not Recovered/Not Resolved]
